FAERS Safety Report 10675152 (Version 1)
Quarter: 2014Q4

REPORT INFORMATION
  Report Type: Spontaneous
  Country: US (occurrence: US)
  Receive Date: 20141224
  Receipt Date: 20141224
  Transmission Date: 20150529
  Serious: Yes (Hospitalization)
  Sender: FDA-Public Use
  Company Number: US-GLAXOSMITHKLINE-US2014GSK041125

PATIENT
  Age: 58 Year
  Sex: Female

DRUGS (6)
  1. LIPITOR [Concomitant]
     Active Substance: ATORVASTATIN CALCIUM
  2. ASPIRIN (BABY) [Concomitant]
  3. ATIVAN [Concomitant]
     Active Substance: LORAZEPAM
  4. PROPAFENONE. [Suspect]
     Active Substance: PROPAFENONE
     Indication: ATRIAL FIBRILLATION
     Dosage: 150 MG, TID
     Route: 048
     Dates: start: 201408, end: 201408
  5. TENORMIN [Concomitant]
     Active Substance: ATENOLOL
  6. PROPAFENONE. [Suspect]
     Active Substance: PROPAFENONE
     Indication: ATRIAL TACHYCARDIA

REACTIONS (1)
  - Heart rate irregular [Recovered/Resolved]

NARRATIVE: CASE EVENT DATE: 201408
